FAERS Safety Report 7008439-5 (Version None)
Quarter: 2010Q3

REPORT INFORMATION
  Report Type: 
  Country: None (occurrence: None)
  Receive Date: 20100922
  Receipt Date: 20100922
  Transmission Date: 20110219
  Serious: Yes (Death)
  Sender: FDA-Public Use
  Company Number: GB-EISAI INC.-E2020-07516-SPO-GB

PATIENT
  Age: 74 Year
  Sex: Male

DRUGS (5)
  1. ARICEPT [Suspect]
     Route: 048
     Dates: end: 20100218
  2. ASPIRIN [Concomitant]
     Route: 048
  3. BENDROFLUMETHIAZIDE [Concomitant]
     Route: 048
  4. BISOPROLOL [Concomitant]
     Route: 048
  5. SIMVASTATIN [Concomitant]
     Route: 048

REACTIONS (4)
  - DUODENAL ULCER [None]
  - GASTRITIS [None]
  - OESOPHAGITIS [None]
  - PEPTIC ULCER HAEMORRHAGE [None]
